FAERS Safety Report 11289704 (Version 3)
Quarter: 2015Q3

REPORT INFORMATION
  Report Type: Spontaneous
  Country: DE (occurrence: DE)
  Receive Date: 20150721
  Receipt Date: 20150826
  Transmission Date: 20151125
  Serious: Yes (Hospitalization, Other)
  Sender: FDA-Public Use
  Company Number: DE-BRISTOL-MYERS SQUIBB COMPANY-BMS-2015-046660

PATIENT
  Age: 0 Day
  Sex: Male
  Weight: 3.04 kg

DRUGS (2)
  1. ABILIFY [Suspect]
     Active Substance: ARIPIPRAZOLE
     Indication: PRODUCT USED FOR UNKNOWN INDICATION
     Dosage: 5 MG, QD
     Route: 064
  2. ANAFRANIL [Suspect]
     Active Substance: CLOMIPRAMINE HYDROCHLORIDE
     Indication: PRODUCT USED FOR UNKNOWN INDICATION
     Dosage: 150 MG, QD
     Route: 064

REACTIONS (8)
  - Tremor neonatal [Unknown]
  - Feeding disorder of infancy or early childhood [Not Recovered/Not Resolved]
  - Drug withdrawal syndrome neonatal [Unknown]
  - Foetal exposure during pregnancy [Recovered/Resolved]
  - Extrapyramidal disorder [Unknown]
  - Premature baby [Unknown]
  - Hypoglycaemia neonatal [Unknown]
  - Cleft lip [Unknown]

NARRATIVE: CASE EVENT DATE: 20150504
